FAERS Safety Report 4912219-1 (Version None)
Quarter: 2006Q1

REPORT INFORMATION
  Report Type: 
  Country: None (occurrence: None)
  Receive Date: 20060215
  Receipt Date: 20051013
  Transmission Date: 20060701
  Serious: No
  Sender: FDA-Public Use
  Company Number: US-GLAXOSMITHKLINE-A0578139A

PATIENT
  Sex: Female

DRUGS (8)
  1. VALTREX [Suspect]
     Dosage: 2G PER DAY
     Route: 048
  2. FLAGYL [Concomitant]
  3. DOXYCYCLINE [Concomitant]
  4. OMEGA-3 [Concomitant]
  5. IMODIUM [Concomitant]
  6. ACIDOPHILIS [Concomitant]
  7. M.V.I. [Concomitant]
  8. PROBIOTICS [Concomitant]

REACTIONS (1)
  - DIARRHOEA [None]
